FAERS Safety Report 13580908 (Version 2)
Quarter: 2018Q3

REPORT INFORMATION
  Report Type: Spontaneous
  Country: US (occurrence: US)
  Receive Date: 20170525
  Receipt Date: 20180731
  Transmission Date: 20181010
  Serious: No
  Sender: FDA-Public Use
  Company Number: US-PFIZER INC-2017225297

PATIENT
  Sex: Female

DRUGS (3)
  1. FLAGYL [Suspect]
     Active Substance: METRONIDAZOLE\METRONIDAZOLE HYDROCHLORIDE
     Dosage: UNK
  2. TYLOX [Suspect]
     Active Substance: ACETAMINOPHEN\OXYCODONE HYDROCHLORIDE
     Dosage: UNK
  3. CLEOCIN [Suspect]
     Active Substance: CLINDAMYCIN PHOSPHATE
     Dosage: UNK

REACTIONS (1)
  - Drug hypersensitivity [Unknown]
